FAERS Safety Report 14045957 (Version 2)
Quarter: 2017Q4

REPORT INFORMATION
  Report Type: Spontaneous
  Country: US (occurrence: US)
  Receive Date: 20171005
  Receipt Date: 20171012
  Transmission Date: 20180321
  Serious: Yes (Life-Threatening)
  Sender: FDA-Public Use
  Company Number: US-PFIZER INC-2017426454

PATIENT
  Sex: Male

DRUGS (4)
  1. DECADRON [Concomitant]
     Active Substance: DEXAMETHASONE
     Indication: BRAIN CANCER METASTATIC
  2. SUTENT [Suspect]
     Active Substance: SUNITINIB MALATE
     Indication: RENAL CELL CARCINOMA
     Dosage: UNK (EVERY 14 DAYS)
  3. DECADRON [Concomitant]
     Active Substance: DEXAMETHASONE
     Indication: RENAL CELL CARCINOMA
     Dosage: UNK
     Dates: start: 201205
  4. BEVACIZUMAB. [Suspect]
     Active Substance: BEVACIZUMAB
     Indication: BRAIN CANCER METASTATIC
     Dosage: UNK (EVERY 14 DAYS)
     Route: 042
     Dates: start: 201205

REACTIONS (11)
  - Seizure [Recovered/Resolved]
  - Skin discolouration [Unknown]
  - Palmar-plantar erythrodysaesthesia syndrome [Unknown]
  - Muscle spasms [Unknown]
  - Dyspepsia [Unknown]
  - Dysphonia [Unknown]
  - Balance disorder [Unknown]
  - Peripheral swelling [Unknown]
  - Loose tooth [Unknown]
  - Tooth fracture [Unknown]
  - Capillary fragility [Unknown]
